FAERS Safety Report 6151292-2 (Version None)
Quarter: 2009Q2

REPORT INFORMATION
  Report Type: 
  Country: None (occurrence: None)
  Receive Date: 20090410
  Receipt Date: 20090408
  Transmission Date: 20091009
  Serious: Yes (Death)
  Sender: FDA-Public Use
  Company Number: IE-ASTRAZENECA-2009GB00865

PATIENT
  Age: 34 Year
  Sex: Male

DRUGS (9)
  1. SEROQUEL [Suspect]
     Indication: MENTAL DISORDER
     Route: 048
     Dates: start: 20070523
  2. ZYPREXA [Suspect]
     Indication: MENTAL DISORDER
     Dates: start: 20070208
  3. VALPROATE SODIUM [Suspect]
     Indication: POST-TRAUMATIC EPILEPSY
     Dates: start: 20040525
  4. TRAMADOL HCL [Suspect]
     Indication: DRUG DEPENDENCE
     Dates: start: 20060619
  5. XANAX [Suspect]
     Indication: ANXIETY
     Dates: start: 20030826
  6. XANAX [Suspect]
     Indication: SLEEP DISORDER
     Dates: start: 20030826
  7. RIVOTRIL [Suspect]
     Indication: MENTAL DISORDER
     Dates: start: 20071012
  8. ZOPITAN [Suspect]
     Indication: ANXIETY
     Dates: start: 20050802
  9. ZOPITAN [Suspect]
     Indication: SLEEP DISORDER
     Dates: start: 20050802

REACTIONS (1)
  - PULMONARY EMBOLISM [None]
